FAERS Safety Report 6620014-0 (Version None)
Quarter: 2010Q1

REPORT INFORMATION
  Report Type: 
  Country: None (occurrence: None)
  Receive Date: 20100309
  Receipt Date: 20100304
  Transmission Date: 20100710
  Serious: Yes (Hospitalization)
  Sender: FDA-Public Use
  Company Number: JP-B.I. PHARMACEUTICALS,INC./RIDGEFIELD-2008-BP-18840NB

PATIENT
  Sex: Female
  Weight: 51 kg

DRUGS (8)
  1. MICARDIS [Suspect]
     Indication: HYPERTENSION
     Dosage: 40 MG
     Route: 048
     Dates: start: 20070301
  2. PANALDINE [Concomitant]
     Indication: PROPHYLAXIS
     Dosage: 100 MG
     Route: 048
  3. LIPITOR [Concomitant]
     Indication: PROPHYLAXIS
     Dosage: 10 MG
     Route: 048
  4. PLETAL [Concomitant]
     Indication: PROPHYLAXIS
     Dosage: 200 MG
     Route: 048
  5. DORNER [Concomitant]
     Indication: PROPHYLAXIS
     Dosage: 120 MCG
     Route: 048
  6. SIGMART [Concomitant]
     Indication: PROPHYLAXIS
     Dosage: 15 MG
     Route: 048
  7. GLIMICRON [Concomitant]
     Dosage: 80 MG
     Route: 048
  8. ASPARA K [Concomitant]
     Indication: PROPHYLAXIS
     Dosage: 300 MG
     Route: 048

REACTIONS (1)
  - CARDIAC FAILURE [None]
